FAERS Safety Report 9527888 (Version 2)
Quarter: 2013Q4

REPORT INFORMATION
  Report Type: Spontaneous
  Country: US (occurrence: US)
  Receive Date: 20130917
  Receipt Date: 20131007
  Transmission Date: 20140711
  Serious: Yes (Hospitalization)
  Sender: FDA-Public Use
  Company Number: US-PFIZER INC-2013264553

PATIENT
  Age: 73 Year
  Sex: Female

DRUGS (1)
  1. SUTENT [Suspect]
     Indication: RENAL CANCER
     Dosage: 50 MG, UNK
     Dates: start: 20130425

REACTIONS (3)
  - Pneumonia [Recovered/Resolved]
  - Disease progression [Unknown]
  - Renal cancer [Unknown]
